FAERS Safety Report 8586769-3 (Version None)
Quarter: 2012Q3

REPORT INFORMATION
  Report Type: 
  Country: None (occurrence: None)
  Receive Date: 20120810
  Receipt Date: 20120731
  Transmission Date: 20120928
  Serious: Yes (Hospitalization, Other)
  Sender: FDA-Public Use
  Company Number: CO-ELI_LILLY_AND_COMPANY-CO201208000858

PATIENT
  Age: 14 Year
  Sex: Female

DRUGS (1)
  1. HUMALOG [Suspect]
     Indication: TYPE 1 DIABETES MELLITUS
     Dosage: UNK UNK, QD
     Route: 058
     Dates: start: 20120714

REACTIONS (3)
  - HYPERGLYCAEMIA [None]
  - DIABETIC KETOACIDOSIS [None]
  - VOMITING [None]
